FAERS Safety Report 11648295 (Version 3)
Quarter: 2016Q3

REPORT INFORMATION
  Report Type: Report from Study
  Country: HU (occurrence: HU)
  Receive Date: 20151021
  Receipt Date: 20160706
  Transmission Date: 20161109
  Serious: Yes (Death, Other)
  Sender: FDA-Public Use
  Company Number: HU-009507513-1510HUN007578

PATIENT
  Age: 7 Year
  Sex: Female

DRUGS (3)
  1. TEMOZOLOMIDE. [Suspect]
     Active Substance: TEMOZOLOMIDE
     Dosage: THIS DOSE FOR CYCLE 12 (140 MG, DAILY)
     Route: 048
     Dates: start: 20130404, end: 20130408
  2. BEVACIZUMAB [Suspect]
     Active Substance: BEVACIZUMAB
     Indication: BRAIN NEOPLASM MALIGNANT
     Dosage: 181 MG, QOW
     Route: 042
     Dates: start: 20120322
  3. TEMOZOLOMIDE. [Suspect]
     Active Substance: TEMOZOLOMIDE
     Indication: BRAIN NEOPLASM MALIGNANT
     Dosage: 100 MG FOR CYCLE 1. DOSE: 75 MG/M2 PER DAY (100 MG,DAILY)
     Route: 048
     Dates: start: 20120531, end: 20120604

REACTIONS (2)
  - Atypical teratoid/rhabdoid tumour of CNS [Fatal]
  - Proteinuria [Unknown]

NARRATIVE: CASE EVENT DATE: 20130418
